FAERS Safety Report 5399121-9 (Version None)
Quarter: 2007Q3

REPORT INFORMATION
  Report Type: 
  Country: None (occurrence: None)
  Receive Date: 20070727
  Receipt Date: 20070208
  Transmission Date: 20080115
  Serious: No
  Sender: FDA-Public Use
  Company Number: A0638669A

PATIENT
  Age: 56 Year
  Sex: Female

DRUGS (1)
  1. TAGAMET HB 200 [Suspect]
     Dates: start: 20070206, end: 20070206

REACTIONS (7)
  - DECREASED APPETITE [None]
  - DEHYDRATION [None]
  - DIARRHOEA [None]
  - FATIGUE [None]
  - MUSCLE SPASMS [None]
  - NAUSEA [None]
  - VOMITING [None]
